FAERS Safety Report 9005414 (Version 1)
Quarter: 2013Q1

REPORT INFORMATION
  Report Type: Spontaneous
  Country: US (occurrence: US)
  Receive Date: 20130108
  Receipt Date: 20130108
  Transmission Date: 20140127
  Serious: Yes (Death)
  Sender: FDA-Public Use
  Company Number: US-BAYER-2013-001156

PATIENT
  Age: 50 Year
  Sex: Female

DRUGS (4)
  1. DIPHENHYDRAMINE HYDROCHLORIDE [Suspect]
  2. IBUPROFEN [Suspect]
  3. CARBON MONOXIDE [Suspect]
  4. AMPHETAMINE [Suspect]

REACTIONS (6)
  - Toxicity to various agents [Fatal]
  - Intentional overdose [Fatal]
  - Cardiac arrest [None]
  - Respiratory arrest [None]
  - Completed suicide [None]
  - Intentional drug misuse [None]
